FAERS Safety Report 17326015 (Version 2)
Quarter: 2020Q1

REPORT INFORMATION
  Report Type: Spontaneous
  Country: BR (occurrence: BR)
  Receive Date: 20200127
  Receipt Date: 20200204
  Transmission Date: 20200409
  Serious: Yes (Other)
  Sender: FDA-Public Use
  Company Number: BR-AMGEN-BRASP2020012264

PATIENT
  Age: 59 Year
  Sex: Male
  Weight: 52 kg

DRUGS (2)
  1. ENBREL [Suspect]
     Active Substance: ETANERCEPT
     Dosage: UNK, NOT USING EVERY WEEK
     Route: 065
  2. ENBREL [Suspect]
     Active Substance: ETANERCEPT
     Indication: RHEUMATOID ARTHRITIS
     Dosage: 50 MILLIGRAM, QWK
     Route: 065
     Dates: start: 2018

REACTIONS (3)
  - Cataract [Not Recovered/Not Resolved]
  - Pterygium [Recovered/Resolved]
  - Condition aggravated [Recovered/Resolved]
